FAERS Safety Report 9934135 (Version 1)
Quarter: 2014Q1

REPORT INFORMATION
  Report Type: Report from Study
  Country: US (occurrence: US)
  Receive Date: 20140228
  Receipt Date: 20140228
  Transmission Date: 20141002
  Serious: No
  Sender: FDA-Public Use
  Company Number: US-ABBVIE-14P-163-1198273-00

PATIENT
  Age: 49 Year
  Sex: Male
  Weight: 90.8 kg

DRUGS (7)
  1. ANDROGEL [Suspect]
     Indication: BLOOD TESTOSTERONE DECREASED
     Dates: start: 201301, end: 201303
  2. ANDROGEL [Suspect]
     Dates: start: 201303, end: 201309
  3. ANDROGEL [Suspect]
     Dosage: 5 PUMP ACTUATIONS
     Dates: start: 201309
  4. CHOLESTEROL MEDICATION [Concomitant]
     Indication: BLOOD CHOLESTEROL INCREASED
  5. VITAMIN C [Concomitant]
     Indication: VITAMIN SUPPLEMENTATION
  6. FISH OIL [Concomitant]
     Indication: VITAMIN SUPPLEMENTATION
  7. FLAX OIL [Concomitant]
     Indication: VITAMIN SUPPLEMENTATION

REACTIONS (1)
  - Blood testosterone decreased [Not Recovered/Not Resolved]
